FAERS Safety Report 9056187 (Version 2)
Quarter: 2013Q1

REPORT INFORMATION
  Report Type: Spontaneous
  Country: JP (occurrence: JP)
  Receive Date: 20130130
  Receipt Date: 20130130
  Transmission Date: 20140127
  Serious: Yes (Other)
  Sender: FDA-Public Use
  Company Number: JP-PFIZER INC-2013030859

PATIENT
  Sex: Male

DRUGS (1)
  1. SOLANAX [Suspect]
     Dosage: UNK

REACTIONS (4)
  - Myasthenic syndrome [Unknown]
  - Eyelid ptosis [Unknown]
  - Speech disorder [Unknown]
  - Dysarthria [Unknown]
